FAERS Safety Report 7525120-4 (Version None)
Quarter: 2011Q2

REPORT INFORMATION
  Report Type: 
  Country: None (occurrence: None)
  Receive Date: 20110606
  Receipt Date: 20091114
  Transmission Date: 20111010
  Serious: Yes (Other)
  Sender: FDA-Public Use
  Company Number: US-BAYER-200939344NA

PATIENT
  Age: 67 Year
  Sex: Female
  Weight: 84 kg

DRUGS (27)
  1. DOPAMINE HCL [Concomitant]
     Dosage: UNK
     Route: 042
     Dates: start: 20010113
  2. NITROGLYCERIN [Concomitant]
     Dosage: UNK
     Route: 041
     Dates: start: 20010112
  3. EPINEPHRINE [Concomitant]
     Dosage: UNK
     Route: 041
     Dates: start: 20010112
  4. PROTAMINE SULFATE [Concomitant]
     Dosage: 500 MG, UNK
     Route: 042
     Dates: start: 20010111, end: 20010111
  5. METOPROLOL TARTRATE [Concomitant]
     Dosage: UNK
     Route: 048
     Dates: start: 20010109
  6. CEFAZOLIN [Concomitant]
     Dosage: 1 G, UNK
     Route: 042
     Dates: start: 20010111
  7. RED BLOOD CELLS [Concomitant]
     Dosage: 2 U, UNK
     Dates: start: 20010113
  8. SOLU-MEDROL [Concomitant]
     Dosage: 2 G, UNK
     Route: 042
     Dates: start: 20010111, end: 20010111
  9. DIGOXIN [Concomitant]
     Dosage: .25 MG, UNK
     Route: 042
     Dates: start: 20010111
  10. ESMOLOL [Concomitant]
     Dosage: UNK
     Route: 042
     Dates: start: 20110109
  11. DOBUTAMINE HYDROCHLORIDE [Concomitant]
     Dosage: UNK
     Route: 042
     Dates: start: 20010114
  12. BACTROBAN [Concomitant]
     Indication: STAPHYLOCOCCUS TEST POSITIVE
     Dosage: UNK
     Dates: start: 20010119
  13. TRASYLOL [Suspect]
     Indication: CORONARY ARTERY BYPASS
     Dosage: 100 MG, UNK
     Route: 042
     Dates: start: 20010111, end: 20010111
  14. OPTIRAY 350 [Concomitant]
     Indication: CATHETERISATION CARDIAC
     Dosage: 100 ML, UNK
     Dates: start: 20010109
  15. LOPRESSOR [Concomitant]
     Route: 048
  16. TRASYLOL [Suspect]
     Indication: AORTIC ANEURYSM REPAIR
  17. LIPITOR [Concomitant]
     Dosage: 40 MG, QD
     Route: 048
     Dates: start: 20010109
  18. VERSED [Concomitant]
     Dosage: 4 MG, UNK
     Route: 042
     Dates: start: 20010111
  19. NEOSYNEPHRINE [Concomitant]
     Dosage: 3 MG/MINUTE
     Route: 042
     Dates: start: 20010111
  20. HEPARIN [Concomitant]
     Dosage: 2000 UNITS
     Route: 042
     Dates: start: 20010111, end: 20010111
  21. RESTORIL [Concomitant]
     Dosage: UNK
     Route: 048
     Dates: start: 20010109
  22. SODIUM NITROPRUSSIDE [Concomitant]
     Dosage: UNK
     Route: 042
     Dates: start: 20110109
  23. NITROGLYCERIN [Concomitant]
     Dosage: UNK
     Route: 042
     Dates: start: 20010111
  24. VANCOMYCIN [Concomitant]
     Dosage: 1 G, UNK
     Route: 042
     Dates: start: 20010111
  25. HEPARIN [Concomitant]
     Dosage: 400 U, UNK
     Route: 042
     Dates: start: 20010111, end: 20010111
  26. RED BLOOD CELLS [Concomitant]
     Dosage: 2 U, UNK
     Dates: start: 20010114
  27. EPINEPHRINE [Concomitant]
     Dosage: 5MCG/MINUTE
     Route: 042
     Dates: start: 20010111

REACTIONS (11)
  - RENAL INJURY [None]
  - MYOCARDIAL INFARCTION [None]
  - EMOTIONAL DISTRESS [None]
  - UNEVALUABLE EVENT [None]
  - PAIN [None]
  - INJURY [None]
  - STRESS [None]
  - ANXIETY [None]
  - RENAL IMPAIRMENT [None]
  - RENAL FAILURE [None]
  - FEAR [None]
